FAERS Safety Report 24078831 (Version 1)
Quarter: 2024Q3

REPORT INFORMATION
  Report Type: Spontaneous
  Country: RO (occurrence: RO)
  Receive Date: 20240711
  Receipt Date: 20240711
  Transmission Date: 20241016
  Serious: Yes (Other)
  Sender: MYLAN
  Company Number: RO-AMGEN-ROUSP2024122934

PATIENT
  Age: 64 Year
  Sex: Male

DRUGS (17)
  1. LENALIDOMIDE [Suspect]
     Active Substance: LENALIDOMIDE
     Indication: Plasma cell myeloma
     Dosage: 15 MILLIGRAM, QD
     Route: 065
  2. LENALIDOMIDE [Suspect]
     Active Substance: LENALIDOMIDE
     Dosage: 10 MILLIGRAM, QD
     Route: 065
  3. LENALIDOMIDE [Suspect]
     Active Substance: LENALIDOMIDE
     Dosage: 25 MILLIGRAM (25 MILLIGRAM ON DAYS 1-21)
     Route: 048
     Dates: start: 201912
  4. LENALIDOMIDE [Suspect]
     Active Substance: LENALIDOMIDE
     Dosage: UNK
     Route: 065
     Dates: start: 202107, end: 202202
  5. KYPROLIS [Suspect]
     Active Substance: CARFILZOMIB
     Indication: Plasma cell myeloma
     Dosage: 30 MILLIGRAM/SQ. METER, QW (UNK FROM DAY 8 CYCLE 1 (MAXIMUM = 60 MG) SECOND DOSE REDUCTION)
     Route: 065
  6. KYPROLIS [Suspect]
     Active Substance: CARFILZOMIB
     Dosage: 40 MILLIGRAM/SQ. METER, QW (UNK CYCLE 1, D AYS 1+2)
     Route: 065
     Dates: start: 201912
  7. KYPROLIS [Suspect]
     Active Substance: CARFILZOMIB
     Dosage: UNK AFTER 12 CYCLES
     Route: 065
     Dates: start: 202012
  8. KYPROLIS [Suspect]
     Active Substance: CARFILZOMIB
     Dosage: UNK  CYCLES 13-18
     Route: 065
     Dates: start: 202101, end: 202106
  9. DEXAMETHASONE [Suspect]
     Active Substance: DEXAMETHASONE
     Indication: Plasma cell myeloma
     Dosage: 40 MILLIGRAM (40 MILLIGRAM ON DAYS: 1,8,15,22 OF THE 28-DAY CYCLE)
     Route: 042
     Dates: start: 201912
  10. DEXAMETHASONE [Suspect]
     Active Substance: DEXAMETHASONE
     Dosage: UNK
     Route: 065
     Dates: start: 202101, end: 202106
  11. DEXAMETHASONE [Suspect]
     Active Substance: DEXAMETHASONE
     Dosage: UNK
     Route: 065
     Dates: start: 202107, end: 202202
  12. METOPROLOL [Concomitant]
     Active Substance: METOPROLOL
     Dosage: UNK
     Route: 065
  13. ZOLEDRONIC ACID [Concomitant]
     Active Substance: ZOLEDRONIC ACID
     Dosage: UNK
     Route: 065
  14. ATACAND [Concomitant]
     Active Substance: CANDESARTAN CILEXETIL
     Dosage: UNK
     Route: 065
  15. ACYCLOVIR [Concomitant]
     Active Substance: ACYCLOVIR
     Indication: Antiviral prophylaxis
     Dosage: UNK
     Route: 065
  16. ENTECAVIR [Concomitant]
     Active Substance: ENTECAVIR
     Dosage: UNK
     Route: 065
  17. ASPIRIN [Concomitant]
     Active Substance: ASPIRIN
     Indication: Prophylaxis
     Dosage: UNK
     Route: 065

REACTIONS (7)
  - Plasma cell myeloma recurrent [Unknown]
  - Neutropenia [Unknown]
  - Thrombocytopenia [Unknown]
  - Pneumonia [Unknown]
  - Adverse reaction [Unknown]
  - Hypertension [Unknown]
  - Influenza [Unknown]

NARRATIVE: CASE EVENT DATE: 20240101
